FAERS Safety Report 4939264-4 (Version None)
Quarter: 2006Q1

REPORT INFORMATION
  Report Type: 
  Country: None (occurrence: None)
  Receive Date: 20060309
  Receipt Date: 20060309
  Transmission Date: 20060701
  Serious: Yes (Life-Threatening, Hospitalization, Other)
  Sender: FDA-Public Use
  Company Number: None

PATIENT
  Sex: Female
  Weight: 72.5755 kg

DRUGS (1)
  1. ORTHO EVRA [Suspect]
     Indication: CONTRACEPTION
     Dosage: 1 PATCH     1 PATCH/WK   TRANSDERMAL
     Route: 062
     Dates: start: 20050317, end: 20051118

REACTIONS (2)
  - PULMONARY EMBOLISM [None]
  - THROMBOSIS [None]
